FAERS Safety Report 6816455-9 (Version None)
Quarter: 2010Q2

REPORT INFORMATION
  Report Type: 
  Country: None (occurrence: None)
  Receive Date: 20100623
  Receipt Date: 20100617
  Transmission Date: 20101027
  Serious: Yes (Congenital Anomaly)
  Sender: FDA-Public Use
  Company Number: AUR-APU-2010-01329

PATIENT

DRUGS (2)
  1. ZIDOVUDINE [Suspect]
     Dosage: TRANSPLACENTAL
     Route: 064
  2. SUSTIVA [Suspect]
     Dosage: TRANSPLACENTAL
     Route: 064

REACTIONS (2)
  - ATRIAL SEPTAL DEFECT [None]
  - MATERNAL DRUGS AFFECTING FOETUS [None]
